FAERS Safety Report 16134991 (Version 1)
Quarter: 2019Q1

REPORT INFORMATION
  Report Type: Spontaneous
  Country: NL (occurrence: NL)
  Receive Date: 20190329
  Receipt Date: 20190329
  Transmission Date: 20190418
  Serious: Yes (Other)
  Sender: FDA-Public Use
  Company Number: NL-PERRIGO-19NL003556

PATIENT
  Age: 45 Year
  Sex: Female

DRUGS (1)
  1. IMIQUIMOD. [Suspect]
     Active Substance: IMIQUIMOD
     Indication: CERVICAL DYSPLASIA
     Dosage: 12.5 MG, 3 TIMES WEEKLY
     Route: 067

REACTIONS (9)
  - Vaginal haemorrhage [Recovered/Resolved]
  - Corneal erosion [Recovered/Resolved]
  - Off label use [Recovered/Resolved]
  - Nausea [Recovered/Resolved]
  - Abdominal pain [Recovered/Resolved]
  - Pyrexia [Recovered/Resolved]
  - Fatigue [Recovered/Resolved]
  - Headache [Recovered/Resolved]
  - Vaginal discharge [Recovered/Resolved]
